APPROVED DRUG PRODUCT: OXANDROLONE
Active Ingredient: OXANDROLONE
Strength: 10MG
Dosage Form/Route: TABLET;ORAL
Application: A077827 | Product #002
Applicant: PAR PHARMACEUTICAL INC
Approved: Jun 22, 2007 | RLD: No | RS: No | Type: DISCN